FAERS Safety Report 13524979 (Version 1)
Quarter: 2017Q2

REPORT INFORMATION
  Report Type: Spontaneous
  Country: US (occurrence: US)
  Receive Date: 20170508
  Receipt Date: 20170508
  Transmission Date: 20170830
  Serious: No
  Sender: FDA-Public Use
  Company Number: US-ROCHE-1117168

PATIENT
  Age: 52 Year
  Sex: Female

DRUGS (1)
  1. AVASTIN [Suspect]
     Active Substance: BEVACIZUMAB
     Indication: EYE HAEMORRHAGE
     Route: 031

REACTIONS (4)
  - Blood pressure increased [Recovering/Resolving]
  - Eye swelling [Unknown]
  - Eye haemorrhage [Not Recovered/Not Resolved]
  - Liposuction [Not Recovered/Not Resolved]
